FAERS Safety Report 8612598-8 (Version None)
Quarter: 2012Q3

REPORT INFORMATION
  Report Type: 
  Country: None (occurrence: None)
  Receive Date: 20120822
  Receipt Date: 20120106
  Transmission Date: 20120928
  Serious: No
  Sender: FDA-Public Use
  Company Number: US-ASTRAZENECA-2011SE62937

PATIENT
  Age: 70 Year
  Sex: Female
  Weight: 83.9 kg

DRUGS (20)
  1. PHENERGAN HCL [Concomitant]
  2. COZAAR [Concomitant]
     Indication: BLOOD CHOLESTEROL ABNORMAL
     Route: 048
     Dates: start: 20060101
  3. PLAVIX [Concomitant]
     Route: 048
     Dates: start: 20050101
  4. ZOCOR [Concomitant]
     Indication: BLOOD CHOLESTEROL ABNORMAL
     Dates: start: 20060101
  5. LEVSIN [Concomitant]
     Indication: GASTRIC DISORDER
     Dosage: 0.125 M, BID
     Route: 048
     Dates: start: 20040101
  6. AZATHIOTRINE [Concomitant]
     Indication: RESPIRATORY DISORDER
     Route: 048
     Dates: start: 20110601
  7. TRENTAL [Concomitant]
     Indication: MUSCLE SPASMS
     Route: 048
     Dates: start: 19930101
  8. SYMBICORT [Suspect]
     Indication: CHRONIC OBSTRUCTIVE PULMONARY DISEASE
     Dosage: 160/4.5 MCG, 2 PUFFS, TWO TIMES A DAY
     Route: 055
     Dates: start: 20100101
  9. ACTONEL [Concomitant]
     Indication: BONE DISORDER
     Route: 048
     Dates: start: 20090101
  10. CLARINEX [Concomitant]
     Indication: HYPERSENSITIVITY
  11. LOVAZA [Concomitant]
  12. PRILOSEC [Concomitant]
     Indication: GASTROOESOPHAGEAL REFLUX DISEASE
     Route: 048
     Dates: start: 19950101
  13. LOFIBRA [Concomitant]
     Indication: BLOOD CHOLESTEROL ABNORMAL
  14. SYMBICORT [Suspect]
     Dosage: 160/4.5 MCG, 2 PUFFS, TWO TIMES A DAY
     Route: 055
     Dates: start: 20110901
  15. AMARYL [Concomitant]
     Indication: DIABETES MELLITUS
     Route: 048
     Dates: start: 20110201
  16. SYNTHROID [Concomitant]
     Indication: THYROID DISORDER
     Route: 048
     Dates: start: 20010101
  17. IMDUR [Concomitant]
     Indication: CARDIAC DISORDER
     Route: 048
     Dates: start: 20050101
  18. CYMBALTA [Concomitant]
     Indication: DEPRESSION
  19. COLCMICINE [Concomitant]
     Indication: GOUT
  20. TOPROL-XL [Concomitant]
     Indication: HEART RATE ABNORMAL
     Dosage: 25 MG 1/2, BID
     Route: 048
     Dates: start: 20080101

REACTIONS (4)
  - DYSPNOEA [None]
  - MALAISE [None]
  - COUGH [None]
  - DRUG DOSE OMISSION [None]
